FAERS Safety Report 10006499 (Version 1)
Quarter: 2014Q1

REPORT INFORMATION
  Report Type: Not Available
  Country: None (occurrence: US)
  Receive Date: 20140313
  Receipt Date: 20140313
  Transmission Date: 20141002
  Serious: Yes (Hospitalization)
  Sender: FDA-Public Use
  Company Number: US-ONYX-2014-0541

PATIENT
  Age: 65 Year
  Sex: Female

DRUGS (1)
  1. KYPROLIS [Suspect]
     Indication: PLASMA CELL MYELOMA
     Route: 042
     Dates: start: 20130618

REACTIONS (4)
  - Clostridium difficile infection [Recovered/Resolved]
  - Influenza [Recovered/Resolved]
  - Cardiac failure congestive [Not Recovered/Not Resolved]
  - Pneumonia [Not Recovered/Not Resolved]
